FAERS Safety Report 8979442 (Version 2)
Quarter: 2013Q1

REPORT INFORMATION
  Report Type: Spontaneous
  Country: GB (occurrence: GB)
  Receive Date: 20121221
  Receipt Date: 20130102
  Transmission Date: 20140127
  Serious: Yes (Other)
  Sender: FDA-Public Use
  Company Number: GB-AMGEN-GBRSP2012081458

PATIENT
  Age: 54 Year
  Sex: Female
  Weight: 51.6 kg

DRUGS (4)
  1. PROLIA [Suspect]
     Indication: OSTEOPOROSIS
     Dosage: 3 MG, ONE TIME DOSE
     Route: 058
     Dates: start: 20120110, end: 20120110
  2. ZOLEDRONIC ACID [Suspect]
     Indication: OSTEOPOROSIS
     Dosage: 3 MG, ONE TIME DOSE
     Route: 042
     Dates: start: 20100809, end: 20100809
  3. ADCAL D3 [Concomitant]
  4. FULTIUM [Concomitant]

REACTIONS (1)
  - Osteonecrosis of jaw [Recovering/Resolving]
